FAERS Safety Report 10729603 (Version 1)
Quarter: 2015Q1

REPORT INFORMATION
  Report Type: Spontaneous
  Country: US (occurrence: None)
  Receive Date: 20150121
  Receipt Date: 20150121
  Transmission Date: 20150721
  Serious: Yes (Disabling, Other)
  Sender: FDA-Public Use
  Company Number: None

PATIENT
  Age: 59 Year
  Sex: Female
  Weight: 63.5 kg

DRUGS (1)
  1. AREDIA [Suspect]
     Active Substance: PAMIDRONATE DISODIUM
     Indication: BREAST CANCER
     Dosage: 30 MG IN 2 HR DRIP MONTHLY-6 WEEKS IV DRIP
     Route: 041
     Dates: start: 20080328, end: 20100820

REACTIONS (6)
  - Tooth fracture [None]
  - Gingival swelling [None]
  - Stress [None]
  - Osteonecrosis of jaw [None]
  - Temporomandibular joint syndrome [None]
  - Pain [None]

NARRATIVE: CASE EVENT DATE: 20080328
